FAERS Safety Report 9817008 (Version 3)
Quarter: 2014Q1

REPORT INFORMATION
  Report Type: Spontaneous
  Country: IL (occurrence: IL)
  Receive Date: 20140114
  Receipt Date: 20140209
  Transmission Date: 20141002
  Serious: Yes (Other)
  Sender: FDA-Public Use
  Company Number: PHHY2014IL003124

PATIENT
  Age: 38 Year
  Sex: Male

DRUGS (2)
  1. GILENYA [Suspect]
     Indication: MULTIPLE SCLEROSIS
     Dosage: 0.5 MG, UNK
     Route: 048
  2. GILENYA [Suspect]
     Dosage: 0.5 MG, UNK
     Route: 048

REACTIONS (12)
  - Lymphocyte morphology abnormal [Unknown]
  - Myelocyte count increased [Unknown]
  - Monocyte count increased [Unknown]
  - Neutrophil count increased [Unknown]
  - Red blood cell count decreased [Unknown]
  - Mean cell haemoglobin concentration decreased [Unknown]
  - Mean cell volume increased [Unknown]
  - Blood lactate dehydrogenase increased [Unknown]
  - Blood glucose decreased [Unknown]
  - Aspartate aminotransferase increased [Not Recovered/Not Resolved]
  - Alanine aminotransferase increased [Not Recovered/Not Resolved]
  - Gamma-glutamyltransferase increased [Not Recovered/Not Resolved]
